FAERS Safety Report 15902540 (Version 2)
Quarter: 2019Q2

REPORT INFORMATION
  Report Type: Spontaneous
  Country: DE (occurrence: DE)
  Receive Date: 20190201
  Receipt Date: 20190412
  Transmission Date: 20190711
  Serious: Yes (Other)
  Sender: FDA-Public Use
  Company Number: PHHY2019DE024580

PATIENT
  Sex: Female
  Weight: 81 kg

DRUGS (1)
  1. COSENTYX [Suspect]
     Active Substance: SECUKINUMAB
     Indication: PSORIASIS
     Dosage: 300 MG, UNK
     Route: 065

REACTIONS (5)
  - Respiratory tract infection [Unknown]
  - Sinusitis [Unknown]
  - Oropharyngeal pain [Recovered/Resolved]
  - Increased bronchial secretion [Unknown]
  - Snoring [Unknown]

NARRATIVE: CASE EVENT DATE: 201812
